FAERS Safety Report 5409594-0 (Version None)
Quarter: 2007Q3

REPORT INFORMATION
  Report Type: 
  Country: None (occurrence: None)
  Receive Date: 20070807
  Receipt Date: 20070723
  Transmission Date: 20080115
  Serious: No
  Sender: FDA-Public Use
  Company Number: APP200700253

PATIENT
  Age: 73 Year
  Sex: Female

DRUGS (1)
  1. CARBOPLATIN [Suspect]
     Indication: LUNG NEOPLASM MALIGNANT
     Dosage: 50 MG, RECEIVED  4 OR 5 TREATMENTS
     Dates: start: 20060101, end: 20060101

REACTIONS (5)
  - DIZZINESS [None]
  - FALL [None]
  - HIP FRACTURE [None]
  - OEDEMA PERIPHERAL [None]
  - SYNCOPE [None]
